FAERS Safety Report 16847107 (Version 2)
Quarter: 2019Q4

REPORT INFORMATION
  Report Type: Spontaneous
  Country: US (occurrence: US)
  Receive Date: 20190924
  Receipt Date: 20191209
  Transmission Date: 20200122
  Serious: No
  Sender: FDA-Public Use
  Company Number: US-BRISTOL-MYERS SQUIBB COMPANY-BMS-2019-092576

PATIENT
  Sex: Male
  Weight: 77.1 kg

DRUGS (1)
  1. SPRYCEL [Suspect]
     Active Substance: DASATINIB
     Indication: CHRONIC MYELOID LEUKAEMIA
     Dosage: 100 MILLIGRAM, QD (HE SAID HE TOOK TWO OF THE 50 MG PILLS ONCE A DAY)
     Route: 065

REACTIONS (2)
  - Alcohol test negative [Unknown]
  - Alcohol test false positive [Unknown]
